FAERS Safety Report 19566465 (Version 1)
Quarter: 2021Q3

REPORT INFORMATION
  Report Type: Spontaneous
  Country: US (occurrence: US)
  Receive Date: 20210716
  Receipt Date: 20210716
  Transmission Date: 20211014
  Serious: Yes (Hospitalization)
  Sender: FDA-Public Use
  Company Number: US-JUBILANT CADISTA PHARMACEUTICALS-2021JUB00199

PATIENT
  Sex: Male
  Weight: 58.96 kg

DRUGS (3)
  1. FUSION PLUS [Concomitant]
     Active Substance: IRON\VITAMIN B
  2. DONEPEZIL HYDROCHLORIDE. [Suspect]
     Active Substance: DONEPEZIL HYDROCHLORIDE
     Indication: DEMENTIA
     Dosage: 5 MG, 1X/DAY
     Route: 048
     Dates: start: 2020, end: 2020
  3. METFORMIN [Concomitant]
     Active Substance: METFORMIN HYDROCHLORIDE
     Dosage: UNK
     Dates: end: 202103

REACTIONS (5)
  - Skin ulcer [Not Recovered/Not Resolved]
  - Infected skin ulcer [Unknown]
  - Gangrene [Unknown]
  - Osteomyelitis [Not Recovered/Not Resolved]
  - Toe amputation [Recovered/Resolved]

NARRATIVE: CASE EVENT DATE: 2020
